FAERS Safety Report 12141084 (Version 3)
Quarter: 2016Q1

REPORT INFORMATION
  Report Type: Spontaneous
  Country: CZ (occurrence: CZ)
  Receive Date: 20160303
  Receipt Date: 20160317
  Transmission Date: 20160526
  Serious: Yes (Life-Threatening, Hospitalization, Other)
  Sender: FDA-Public Use
  Company Number: CZ-ELI_LILLY_AND_COMPANY-CZ201603000137

PATIENT
  Age: 23 Year
  Sex: Male

DRUGS (4)
  1. ZYPADHERA [Suspect]
     Active Substance: OLANZAPINE PAMOATE
     Indication: SCHIZOPHRENIA
     Dosage: 300 MG, OTHER: EVERY 4 WEEKS.
     Route: 030
     Dates: start: 20140916
  2. ARIPIPRAZOL [Concomitant]
     Active Substance: ARIPIPRAZOLE
     Dosage: 15 MG, UNK
     Route: 065
  3. VENLAFAXINE [Concomitant]
     Active Substance: VENLAFAXINE HYDROCHLORIDE
     Dosage: 150 MG, QD
     Route: 065
  4. VALPROATE [Concomitant]
     Active Substance: VALPROATE SODIUM
     Dosage: 1000 MG, QD
     Route: 065

REACTIONS (11)
  - Seizure [Recovered/Resolved]
  - Injection site haemorrhage [Recovered/Resolved]
  - Psychomotor hyperactivity [Recovered/Resolved]
  - Antipsychotic drug level increased [Recovered/Resolved]
  - Loss of consciousness [Recovered/Resolved]
  - Agitation [Recovered/Resolved]
  - Nausea [Recovered/Resolved]
  - Hypertension [Recovered/Resolved]
  - Sedation [Recovered/Resolved]
  - Somnolence [Recovered/Resolved]
  - Dysarthria [Recovered/Resolved]

NARRATIVE: CASE EVENT DATE: 20160203
